FAERS Safety Report 14704561 (Version 7)
Quarter: 2022Q4

REPORT INFORMATION
  Report Type: Spontaneous
  Country: US (occurrence: US)
  Receive Date: 20180402
  Receipt Date: 20221103
  Transmission Date: 20230113
  Serious: No
  Sender: FDA-Public Use
  Company Number: US-PFIZER INC-2018130721

PATIENT
  Age: 74 Year
  Sex: Female

DRUGS (1)
  1. XELJANZ [Suspect]
     Active Substance: TOFACITINIB CITRATE
     Dosage: 5 MG

REACTIONS (10)
  - Infection [Unknown]
  - Cognitive disorder [Unknown]
  - Thinking abnormal [Unknown]
  - Frequent bowel movements [Unknown]
  - Decreased appetite [Unknown]
  - Urticaria [Unknown]
  - Rash [Unknown]
  - Sinusitis [Unknown]
  - Tooth extraction [Unknown]
  - Confusional state [Unknown]
